FAERS Safety Report 20183001 (Version 1)
Quarter: 2021Q4

REPORT INFORMATION
  Report Type: Spontaneous
  Country: US (occurrence: US)
  Receive Date: 20211214
  Receipt Date: 20211214
  Transmission Date: 20220303
  Serious: No
  Sender: FDA-Public Use
  Company Number: US-GE HEALTHCARE-2021CSU005414

PATIENT
  Age: 51 Year
  Sex: Female

DRUGS (4)
  1. OMNIPAQUE [Suspect]
     Active Substance: IOHEXOL
     Indication: Computerised tomogram abdomen
     Dosage: 135 ML, SINGLE
     Route: 042
     Dates: start: 20211028, end: 20211028
  2. OMNIPAQUE [Suspect]
     Active Substance: IOHEXOL
     Indication: Colon cancer
  3. OMNIPAQUE [Suspect]
     Active Substance: IOHEXOL
     Indication: Computerised tomogram abdomen
     Dosage: 50 ML, SINGLE
     Route: 048
     Dates: start: 20211028, end: 20211028
  4. OMNIPAQUE [Suspect]
     Active Substance: IOHEXOL
     Indication: Colon cancer

REACTIONS (2)
  - Sneezing [Recovered/Resolved]
  - Urticaria [Recovered/Resolved]

NARRATIVE: CASE EVENT DATE: 20211028
